FAERS Safety Report 9686372 (Version 1)
Quarter: 2013Q4

REPORT INFORMATION
  Report Type: Spontaneous
  Country: US (occurrence: US)
  Receive Date: 20131113
  Receipt Date: 20131113
  Transmission Date: 20140711
  Serious: No
  Sender: FDA-Public Use
  Company Number: US-ENDO PHARMACEUTICALS INC.-TRAZ20120010

PATIENT
  Age: 50 Year
  Sex: Female
  Weight: 79.45 kg

DRUGS (3)
  1. TRAZODONE HYDROCHLORIDE TABLETS USP [Suspect]
     Indication: DEPRESSION
     Route: 048
  2. ABILIFY [Concomitant]
     Indication: DEPRESSION
     Dosage: 2 MG
     Route: 048
  3. CYMBALTA [Concomitant]
     Indication: DEPRESSION
     Dosage: 60 MG
     Route: 048

REACTIONS (1)
  - Drug screen positive [Not Recovered/Not Resolved]
